FAERS Safety Report 5770049-5 (Version None)
Quarter: 2008Q2

REPORT INFORMATION
  Report Type: 
  Country: None (occurrence: None)
  Receive Date: 20080613
  Receipt Date: 20080416
  Transmission Date: 20081010
  Serious: No
  Sender: FDA-Public Use
  Company Number: US-ABBOTT-08P-163-0447590-00

PATIENT
  Sex: Female
  Weight: 83.99 kg

DRUGS (15)
  1. HUMIRA [Suspect]
     Indication: CROHN'S DISEASE
     Route: 058
     Dates: start: 20071201
  2. ISOSORBIDE MONONITRATE [Concomitant]
     Indication: VASODILATION PROCEDURE
     Route: 048
  3. OLMESARTAN MEDOXOMIL [Concomitant]
     Indication: HYPERTENSION
     Route: 048
  4. PIOGLITAZONE [Concomitant]
     Indication: DIABETES MELLITUS
     Route: 048
  5. HUMALOG [Concomitant]
     Indication: DIABETES MELLITUS
     Dosage: PER SLIDING SCALE
     Route: 058
  6. LANTUS [Concomitant]
     Indication: DIABETES MELLITUS
     Route: 058
  7. CLOPIDOGREL [Concomitant]
     Indication: CORONARY ARTERIAL STENT INSERTION
     Route: 048
  8. CLOPIDOGREL [Concomitant]
     Indication: CARDIOVASCULAR DISORDER
  9. ESOMEPRAZOLE MAGNESIUM [Concomitant]
     Indication: GASTROOESOPHAGEAL REFLUX DISEASE
     Route: 048
  10. FLUOXETINE HYDROCHLORIDE [Concomitant]
     Indication: DEPRESSION
     Route: 048
  11. CLONAZEPAM [Concomitant]
     Indication: MIGRAINE
     Route: 048
  12. CYCLOBENZAPRINE HCL [Concomitant]
     Indication: FIBROMYALGIA
     Route: 048
  13. MONTELUKAST SODIUM [Concomitant]
     Indication: SEASONAL ALLERGY
     Route: 048
  14. MONTELUKAST SODIUM [Concomitant]
     Indication: ASTHMA
  15. PROPACET 100 [Concomitant]
     Indication: PAIN
     Dosage: 2 TABLETS 1-2 TIMES DAILY
     Route: 048

REACTIONS (1)
  - ANKLE FRACTURE [None]
